FAERS Safety Report 7825094-2 (Version None)
Quarter: 2011Q4

REPORT INFORMATION
  Report Type: 
  Country: None (occurrence: None)
  Receive Date: 20111019
  Receipt Date: 20110922
  Transmission Date: 20120403
  Serious: No
  Sender: FDA-Public Use
  Company Number: US-BRISTOL-MYERS SQUIBB COMPANY-16088965

PATIENT
  Age: 63 Year
  Sex: Male
  Weight: 78 kg

DRUGS (1)
  1. AVALIDE [Suspect]

REACTIONS (6)
  - LACERATION [None]
  - MUSCULOSKELETAL PAIN [None]
  - NOCTURIA [None]
  - MASS [None]
  - ARTHROPATHY [None]
  - JOINT INJURY [None]
